FAERS Safety Report 6182343-7 (Version None)
Quarter: 2009Q2

REPORT INFORMATION
  Report Type: 
  Country: None (occurrence: None)
  Receive Date: 20090507
  Receipt Date: 20090507
  Transmission Date: 20091009
  Serious: Yes (Other)
  Sender: FDA-Public Use
  Company Number: None

PATIENT
  Age: 18 Year
  Sex: Female
  Weight: 61.2356 kg

DRUGS (2)
  1. DARVOCET [Suspect]
     Indication: PAIN MANAGEMENT
     Dates: start: 19950601, end: 19950601
  2. DARVOCET [Suspect]
     Indication: TOOTH EXTRACTION
     Dates: start: 19950601, end: 19950601

REACTIONS (2)
  - CHEST PAIN [None]
  - MYOCARDIAL INFARCTION [None]
